FAERS Safety Report 7307408-5 (Version None)
Quarter: 2011Q1

REPORT INFORMATION
  Report Type: 
  Country: None (occurrence: None)
  Receive Date: 20110223
  Receipt Date: 20110209
  Transmission Date: 20110831
  Serious: Yes (Death)
  Sender: FDA-Public Use
  Company Number: US-ENDO PHARMACEUTICALS INC.-OPER20110034

PATIENT
  Age: 29 Year
  Sex: Male

DRUGS (2)
  1. OPANA ER [Suspect]
     Dosage: 20 MG
     Route: 048
  2. ALCOHOL [Suspect]
     Indication: SOCIAL ALCOHOL DRINKER
     Dosage: UNK
     Route: 048

REACTIONS (3)
  - ALCOHOL INTERACTION [None]
  - DRUG ABUSE [None]
  - ACCIDENTAL OVERDOSE [None]
